FAERS Safety Report 16862126 (Version 1)
Quarter: 2019Q4

REPORT INFORMATION
  Report Type: Spontaneous
  Country: US (occurrence: US)
  Receive Date: 20190927
  Receipt Date: 20190927
  Transmission Date: 20200122
  Serious: Yes (Life-Threatening)
  Sender: FDA-Public Use
  Company Number: None

PATIENT
  Age: 64 Year
  Sex: Male
  Weight: 78 kg

DRUGS (4)
  1. ANGIOTENSIN II [Suspect]
     Active Substance: ANGIOTENSIN II
     Indication: VASOPLEGIA SYNDROME
     Dosage: ?          OTHER FREQUENCY:CONTINUOUS;?
     Route: 041
     Dates: start: 20190823, end: 20190824
  2. NOREPINEPHRINE. [Concomitant]
     Active Substance: NOREPINEPHRINE
     Dates: start: 20190823, end: 20190829
  3. VASOPRESSIN. [Concomitant]
     Active Substance: VASOPRESSIN
     Dates: start: 20190823, end: 20190829
  4. EPINEPHRINE. [Concomitant]
     Active Substance: EPINEPHRINE
     Dates: start: 20190823, end: 20190829

REACTIONS (1)
  - Intestinal ischaemia [None]

NARRATIVE: CASE EVENT DATE: 20190823
